FAERS Safety Report 25858697 (Version 1)
Quarter: 2025Q3

REPORT INFORMATION
  Report Type: Spontaneous
  Country: CA (occurrence: CA)
  Receive Date: 20250929
  Receipt Date: 20250929
  Transmission Date: 20251021
  Serious: Yes (Other)
  Sender: AUROBINDO
  Company Number: CA-AUROBINDO-AUR-APL-2025-048653

PATIENT
  Age: 7 Year
  Sex: Male
  Weight: 23 kg

DRUGS (5)
  1. DEFERASIROX [Suspect]
     Active Substance: DEFERASIROX
     Indication: Iron overload
     Dosage: 360 MILLIGRAM, ONCE A DAY
     Route: 048
  2. DEFERASIROX [Suspect]
     Active Substance: DEFERASIROX
     Indication: Anaemia
  3. DEFERASIROX [Suspect]
     Active Substance: DEFERASIROX
     Indication: Iron overload
     Route: 065
  4. DEFERASIROX [Suspect]
     Active Substance: DEFERASIROX
     Indication: Anaemia
     Dosage: 360 MILLIGRAM, ONCE A DAY
     Route: 048
  5. URSO [Suspect]
     Active Substance: URSODIOL
     Indication: Product used for unknown indication
     Route: 065

REACTIONS (6)
  - Blood iron decreased [Unknown]
  - Dacryostenosis acquired [Unknown]
  - Lacrimation increased [Unknown]
  - Phimosis [Unknown]
  - Skin fissures [Unknown]
  - Upper respiratory tract infection [Unknown]
